FAERS Safety Report 9102999 (Version 1)
Quarter: 2013Q1

REPORT INFORMATION
  Report Type: Spontaneous
  Country: US (occurrence: US)
  Receive Date: 20130218
  Receipt Date: 20130218
  Transmission Date: 20140127
  Serious: No
  Sender: FDA-Public Use
  Company Number: US-ASTRAZENECA-2013SE08322

PATIENT
  Age: 72 Year
  Sex: Female
  Weight: 57.6 kg

DRUGS (1)
  1. TOPROL XL [Suspect]
     Indication: HYPERTENSION
     Route: 048
     Dates: start: 201212

REACTIONS (2)
  - Blood pressure increased [Unknown]
  - Drug ineffective [Unknown]
